FAERS Safety Report 7027135-1 (Version None)
Quarter: 2010Q4

REPORT INFORMATION
  Report Type: 
  Country: None (occurrence: None)
  Receive Date: 20101004
  Receipt Date: 20100924
  Transmission Date: 20110411
  Serious: No
  Sender: FDA-Public Use
  Company Number: US-B.I. PHARMACEUTICALS,INC./RIDGEFIELD-2010-BP-10913BP

PATIENT
  Sex: Female

DRUGS (3)
  1. SPIRIVA [Suspect]
     Indication: EMPHYSEMA
     Dosage: 18 MCG
     Route: 055
     Dates: start: 20060101
  2. ALBUTEROL [Concomitant]
     Indication: EMPHYSEMA
     Route: 055
  3. PROAIR HFA [Concomitant]
     Indication: EMPHYSEMA
     Route: 055

REACTIONS (2)
  - INFECTION [None]
  - VISUAL ACUITY REDUCED [None]
